FAERS Safety Report 15526607 (Version 1)
Quarter: 2018Q4

REPORT INFORMATION
  Report Type: Other
  Country: US (occurrence: US)
  Receive Date: 20181018
  Receipt Date: 20181018
  Transmission Date: 20190205
  Serious: No
  Sender: FDA-Public Use
  Company Number: US-LANNETT COMPANY, INC.-US-2018LAN000652

PATIENT

DRUGS (2)
  1. LEVOTHYROXINE SODIUM. [Suspect]
     Active Substance: LEVOTHYROXINE SODIUM
     Indication: PRODUCT USED FOR UNKNOWN INDICATION
     Dosage: 0.075 MG, QD (OTHER MANUFACTURER)
     Route: 048
  2. LEVOTHYROXINE SODIUM. [Suspect]
     Active Substance: LEVOTHYROXINE SODIUM
     Dosage: 0.075 MG, QD (LANNETT)
     Route: 048

REACTIONS (6)
  - Palpitations [Unknown]
  - Alopecia [Unknown]
  - Product dose omission [Unknown]
  - Dry skin [Unknown]
  - Cold sweat [Unknown]
  - Headache [Unknown]
